FAERS Safety Report 13759113 (Version 7)
Quarter: 2019Q2

REPORT INFORMATION
  Report Type: Report from Study
  Country: None (occurrence: US)
  Receive Date: 20170717
  Receipt Date: 20190512
  Transmission Date: 20190711
  Serious: Yes (Hospitalization, Other)
  Sender: FDA-Public Use
  Company Number: US-ABBVIE-16K-163-1598936-00

PATIENT
  Age: 52 Year
  Sex: Male

DRUGS (13)
  1. MOBIC [Concomitant]
     Active Substance: MELOXICAM
     Indication: PRODUCT USED FOR UNKNOWN INDICATION
  2. OMEPRAZOLE. [Concomitant]
     Active Substance: OMEPRAZOLE
     Indication: PRODUCT USED FOR UNKNOWN INDICATION
  3. POTASSIUM CHLORIDE. [Concomitant]
     Active Substance: POTASSIUM CHLORIDE
     Indication: PRODUCT USED FOR UNKNOWN INDICATION
  4. HUMIRA [Suspect]
     Active Substance: ADALIMUMAB
     Indication: CROHN^S DISEASE
     Route: 058
     Dates: start: 20160314
  5. ONDANSETRON HCL [Concomitant]
     Active Substance: ONDANSETRON HYDROCHLORIDE
     Indication: PRODUCT USED FOR UNKNOWN INDICATION
  6. PENTASA [Concomitant]
     Active Substance: MESALAMINE
     Indication: PRODUCT USED FOR UNKNOWN INDICATION
  7. VSL#3 [Concomitant]
     Active Substance: PROBIOTICS NOS
     Indication: PRODUCT USED FOR UNKNOWN INDICATION
  8. BUDESONIDE. [Concomitant]
     Active Substance: BUDESONIDE
     Indication: PRODUCT USED FOR UNKNOWN INDICATION
  9. HUMIRA [Suspect]
     Active Substance: ADALIMUMAB
     Route: 058
     Dates: start: 2017, end: 2019
  10. CITALOPRAM HYDROBROMIDE. [Concomitant]
     Active Substance: CITALOPRAM HYDROBROMIDE
     Indication: PRODUCT USED FOR UNKNOWN INDICATION
  11. LOSARTAN POTASSIUM/HCTZ [Concomitant]
     Active Substance: HYDROCHLOROTHIAZIDE\LOSARTAN POTASSIUM
     Indication: PRODUCT USED FOR UNKNOWN INDICATION
  12. TYLENOL [Concomitant]
     Active Substance: ACETAMINOPHEN
     Indication: PRODUCT USED FOR UNKNOWN INDICATION
  13. REQUIP [Concomitant]
     Active Substance: ROPINIROLE HYDROCHLORIDE
     Indication: PRODUCT USED FOR UNKNOWN INDICATION

REACTIONS (25)
  - Pain [Unknown]
  - Appendicitis [Unknown]
  - Crohn^s disease [Recovered/Resolved]
  - Drug level decreased [Unknown]
  - Crohn^s disease [Recovered/Resolved]
  - Sleep apnoea syndrome [Unknown]
  - Contusion [Unknown]
  - Gastrointestinal pain [Unknown]
  - Crohn^s disease [Recovering/Resolving]
  - Large intestinal ulcer [Unknown]
  - Ear infection [Recovered/Resolved]
  - Blood iron decreased [Unknown]
  - Abdominal pain [Recovered/Resolved]
  - Swelling [Unknown]
  - Peripheral swelling [Not Recovered/Not Resolved]
  - Injection site bruising [Unknown]
  - Defaecation urgency [Recovered/Resolved]
  - Defaecation urgency [Recovering/Resolving]
  - Abdominal pain [Recovering/Resolving]
  - Victim of crime [Unknown]
  - Arthropod bite [Unknown]
  - Contusion [Unknown]
  - Therapeutic product effect decreased [Unknown]
  - Gastrointestinal haemorrhage [Unknown]
  - Crohn^s disease [Recovered/Resolved]

NARRATIVE: CASE EVENT DATE: 2016
